FAERS Safety Report 16903475 (Version 2)
Quarter: 2019Q4

REPORT INFORMATION
  Report Type: Spontaneous
  Country: US (occurrence: US)
  Receive Date: 20191010
  Receipt Date: 20191125
  Transmission Date: 20200122
  Serious: No
  Sender: FDA-Public Use
  Company Number: US-PFIZER INC-2019434938

PATIENT
  Age: 62 Year
  Sex: Female
  Weight: 113.38 kg

DRUGS (7)
  1. LETROZOLE. [Concomitant]
     Active Substance: LETROZOLE
     Dosage: 2.5 MG, UNK
     Dates: start: 201512
  2. NORVASC [Concomitant]
     Active Substance: AMLODIPINE BESYLATE
     Dosage: 2.5 MG, UNK
     Dates: start: 2016
  3. ELIQUIS [Concomitant]
     Active Substance: APIXABAN
     Dosage: 5 MG, UNK
     Dates: start: 201704
  4. IBRANCE [Suspect]
     Active Substance: PALBOCICLIB
     Indication: BREAST CANCER METASTATIC
  5. IBRANCE [Suspect]
     Active Substance: PALBOCICLIB
     Indication: BREAST CANCER FEMALE
     Dosage: 75 MG, 1X/DAY
     Dates: start: 201512
  6. TRAMADOL. [Concomitant]
     Active Substance: TRAMADOL
     Dosage: 50 MG, UNK
     Dates: start: 201511
  7. XGEVA [Concomitant]
     Active Substance: DENOSUMAB
     Dosage: UNK
     Route: 058

REACTIONS (2)
  - Neutrophil count abnormal [Unknown]
  - Blood count abnormal [Recovered/Resolved]

NARRATIVE: CASE EVENT DATE: 20191004
